FAERS Safety Report 10108956 (Version 1)
Quarter: 2014Q2

REPORT INFORMATION
  Report Type: Spontaneous
  Country: US (occurrence: US)
  Receive Date: 20140425
  Receipt Date: 20140425
  Transmission Date: 20141212
  Serious: Yes (Hospitalization, Other)
  Sender: FDA-Public Use
  Company Number: US-UCBSA-118531

PATIENT
  Age: 60 Year
  Sex: Male

DRUGS (3)
  1. CIMZIA [Suspect]
     Indication: RHEUMATOID SCLERITIS
     Dates: start: 20130123
  2. MTX [Concomitant]
  3. PREDNISONE [Concomitant]

REACTIONS (1)
  - Pulmonary embolism [Recovering/Resolving]
